FAERS Safety Report 13742137 (Version 1)
Quarter: 2017Q3

REPORT INFORMATION
  Report Type: Spontaneous
  Country: US (occurrence: US)
  Receive Date: 20170711
  Receipt Date: 20170711
  Transmission Date: 20171127
  Serious: Yes (Hospitalization)
  Sender: FDA-Public Use
  Company Number: None

PATIENT
  Age: 32 Year
  Sex: Male
  Weight: 128.6 kg

DRUGS (21)
  1. ALDACTONE [Concomitant]
     Active Substance: SPIRONOLACTONE
  2. POTASSIUM CHLORIDE. [Concomitant]
     Active Substance: POTASSIUM CHLORIDE
  3. CIPRO [Concomitant]
     Active Substance: CIPROFLOXACIN HYDROCHLORIDE
  4. ROCEPHIN [Concomitant]
     Active Substance: CEFTRIAXONE SODIUM
  5. SOFOSBUVIR 400 GILEAD SCIENCES, INC. [Suspect]
     Active Substance: SOFOSBUVIR
     Indication: HEPATITIS C
     Route: 048
     Dates: start: 20160630, end: 20161215
  6. LACTULOSE. [Concomitant]
     Active Substance: LACTULOSE
  7. DACLATASVIR 60 [Suspect]
     Active Substance: DACLATASVIR
     Indication: HEPATITIS C
     Route: 048
     Dates: start: 20160630, end: 20161215
  8. REFAXIMIN [Concomitant]
  9. PROTONIX [Concomitant]
     Active Substance: PANTOPRAZOLE SODIUM
  10. ALBUMIN [Concomitant]
     Active Substance: ALBUMIN HUMAN
  11. ALBUTEROL. [Concomitant]
     Active Substance: ALBUTEROL
  12. OXYCODONE [Concomitant]
     Active Substance: OXYCODONE
  13. DITROPAN [Concomitant]
     Active Substance: OXYBUTYNIN CHLORIDE
  14. TYLENOL [Concomitant]
     Active Substance: ACETAMINOPHEN
  15. SYMBICORT [Concomitant]
     Active Substance: BUDESONIDE\FORMOTEROL FUMARATE DIHYDRATE
  16. METOLAZONE. [Concomitant]
     Active Substance: METOLAZONE
  17. LASIX [Concomitant]
     Active Substance: FUROSEMIDE
  18. FENTANYL. [Concomitant]
     Active Substance: FENTANYL
  19. CLAFORAN [Concomitant]
     Active Substance: CEFOTAXIME SODIUM
  20. BUMEX [Concomitant]
     Active Substance: BUMETANIDE
  21. INDERAL [Concomitant]
     Active Substance: PROPRANOLOL HYDROCHLORIDE

REACTIONS (1)
  - Pneumonia [None]

NARRATIVE: CASE EVENT DATE: 20161212
